FAERS Safety Report 22250797 (Version 2)
Quarter: 2023Q2

REPORT INFORMATION
  Report Type: Spontaneous
  Country: US (occurrence: US)
  Receive Date: 20230425
  Receipt Date: 20230523
  Transmission Date: 20230721
  Serious: Yes (Other)
  Sender: FDA-Public Use
  Company Number: US-BRISTOL-MYERS SQUIBB COMPANY-2023-055838

PATIENT
  Age: 83 Year
  Sex: Female

DRUGS (2)
  1. REVLIMID [Suspect]
     Active Substance: LENALIDOMIDE
     Indication: Plasma cell myeloma
     Dosage: TAKE 1 CAPSULE BY MOUTH EVERY DAY
     Route: 048
     Dates: start: 20190201
  2. REVLIMID [Suspect]
     Active Substance: LENALIDOMIDE
     Indication: Hypercalcaemia
     Dosage: TAKE 1 CAPSULE BY MOUTH EVERY DAY
     Route: 048

REACTIONS (5)
  - Arthropathy [Unknown]
  - Asthenia [Unknown]
  - Hypersensitivity [Unknown]
  - Urticaria [Unknown]
  - Dehydration [Recovering/Resolving]
